FAERS Safety Report 18610542 (Version 1)
Quarter: 2020Q4

REPORT INFORMATION
  Report Type: Spontaneous
  Country: CN (occurrence: CN)
  Receive Date: 20201214
  Receipt Date: 20201214
  Transmission Date: 20210114
  Serious: Yes (Life-Threatening, Other)
  Sender: FDA-Public Use
  Company Number: CN-PFIZER INC-2020484943

PATIENT
  Age: 60 Year
  Sex: Female

DRUGS (2)
  1. PREGABALIN. [Suspect]
     Active Substance: PREGABALIN
     Indication: THYMOMA
     Dosage: 75 MG, 2X/DAY
     Route: 048
  2. BACLOFEN. [Suspect]
     Active Substance: BACLOFEN
     Indication: THYMOMA
     Dosage: 10 MG, 3X/DAY
     Route: 048

REACTIONS (4)
  - Drug ineffective for unapproved indication [Unknown]
  - Off label use [Unknown]
  - Myoclonus [Unknown]
  - Encephalomyelitis [Unknown]
